FAERS Safety Report 14901797 (Version 1)
Quarter: 2018Q2

REPORT INFORMATION
  Report Type: Spontaneous
  Country: US (occurrence: US)
  Receive Date: 20180428
  Receipt Date: 20180428
  Transmission Date: 20180711
  Serious: No
  Sender: FDA-Public Use
  Company Number: None

PATIENT
  Age: 55 Year
  Sex: Female
  Weight: 76.5 kg

DRUGS (4)
  1. CRESTOR [Concomitant]
     Active Substance: ROSUVASTATIN CALCIUM
  2. SYNTHROID [Concomitant]
     Active Substance: LEVOTHYROXINE SODIUM
  3. BABY ASPIRIN [Concomitant]
     Active Substance: ASPIRIN
  4. MOVIPREP [Suspect]
     Active Substance: ASCORBIC ACID\POLYETHYLENE GLYCOL 3350\POTASSIUM CHLORIDE\SODIUM ASCORBATE\SODIUM CHLORIDE\SODIUM SULFATE
     Indication: COLONOSCOPY
     Dosage: ?          QUANTITY:64 OUNCE(S);OTHER FREQUENCY:TWICE 5PM AND 9PM;?
     Route: 048
     Dates: start: 20180426, end: 20180426

REACTIONS (3)
  - Abdominal distension [None]
  - Ill-defined disorder [None]
  - Abdominal pain [None]

NARRATIVE: CASE EVENT DATE: 20180426
